FAERS Safety Report 8119500-6 (Version None)
Quarter: 2012Q1

REPORT INFORMATION
  Report Type: 
  Country: None (occurrence: None)
  Receive Date: 20120207
  Receipt Date: 20120130
  Transmission Date: 20120608
  Serious: Yes (Other)
  Sender: FDA-Public Use
  Company Number: PHHY2012NL007551

PATIENT
  Sex: Female

DRUGS (2)
  1. ZOMETA [Suspect]
     Indication: TRANSITIONAL CELL CARCINOMA
     Dosage: 4 MG/100 ML, ONCE PER 42 DAYS
     Dates: start: 20111111
  2. ZOMETA [Suspect]
     Dosage: 4 MG/100 ML, ONCE PER 42 DAYS
     Dates: start: 20111223, end: 20111223

REACTIONS (1)
  - TERMINAL STATE [None]
